FAERS Safety Report 7614689 (Version 4)
Quarter: 2015Q1

REPORT INFORMATION
  Report Type: Report from Study
  Country: US (occurrence: US)
  Receive Date: 20101001
  Receipt Date: 20150227
  Transmission Date: 20150721
  Serious: Yes (Hospitalization, Other)
  Sender: FDA-Public Use
  Company Number: US-ROCHE-729464

PATIENT
  Age: 57 Year
  Sex: Female
  Weight: 84 kg

DRUGS (10)
  1. KEPPRA [Concomitant]
     Active Substance: LEVETIRACETAM
     Route: 065
  2. METOCARBAMOL [Concomitant]
     Active Substance: METHOCARBAMOL
  3. GLIBENCLAMIDE [Concomitant]
     Active Substance: GLYBURIDE
  4. TEMOZOLOMIDE. [Suspect]
     Active Substance: TEMOZOLOMIDE
     Indication: GLIOBLASTOMA MULTIFORME
     Dosage: FOR 5 DAYS EVERY 2 WEEKS
     Route: 048
     Dates: start: 20100427, end: 20100913
  5. DECADRON [Concomitant]
     Active Substance: DEXAMETHASONE
  6. ACTOS [Concomitant]
     Active Substance: PIOGLITAZONE HYDROCHLORIDE
  7. BEVACIZUMAB [Suspect]
     Active Substance: BEVACIZUMAB
     Indication: GLIOBLASTOMA MULTIFORME
     Dosage: LAST DOSE PRIOR TO SAE: 9 SEP 2010
     Route: 042
     Dates: start: 20100427, end: 20100909
  8. COUMADIN (UNITED STATES) [Concomitant]
  9. NYSTATIN. [Concomitant]
     Active Substance: NYSTATIN
     Dosage: DRUG: NYSTATIN MOUTHWASH
     Route: 065
  10. HYDROCHLOROTHIAZIDE. [Concomitant]
     Active Substance: HYDROCHLOROTHIAZIDE

REACTIONS (3)
  - Seizure [Unknown]
  - Delirium [Unknown]
  - Pneumonia [Unknown]

NARRATIVE: CASE EVENT DATE: 20100923
